FAERS Safety Report 6871913-6 (Version None)
Quarter: 2010Q3

REPORT INFORMATION
  Report Type: 
  Country: None (occurrence: None)
  Receive Date: 20100723
  Receipt Date: 20100713
  Transmission Date: 20110219
  Serious: Yes (Other)
  Sender: FDA-Public Use
  Company Number: CA-JNJFOC-20100704820

PATIENT
  Sex: Female
  Weight: 46 kg

DRUGS (1)
  1. REMICADE [Suspect]
     Indication: CROHN'S DISEASE
     Route: 042

REACTIONS (7)
  - ACTIVITIES OF DAILY LIVING IMPAIRED [None]
  - BALANCE DISORDER [None]
  - COORDINATION ABNORMAL [None]
  - DIZZINESS [None]
  - GAIT DISTURBANCE [None]
  - HYPOAESTHESIA [None]
  - MUSCULAR WEAKNESS [None]
